FAERS Safety Report 15632362 (Version 3)
Quarter: 2018Q4

REPORT INFORMATION
  Report Type: Report from Study
  Country: CA (occurrence: CA)
  Receive Date: 20181119
  Receipt Date: 20181128
  Transmission Date: 20190205
  Serious: Yes (Hospitalization)
  Sender: FDA-Public Use
  Company Number: CA-EISAI MEDICAL RESEARCH-EC-2017-025414

PATIENT
  Age: 75 Year
  Sex: Male

DRUGS (18)
  1. LENVIMA [Suspect]
     Active Substance: LENVATINIB
     Indication: THYROID CANCER
     Route: 048
     Dates: start: 20170224, end: 2017
  2. PERINDOPRIL [Concomitant]
     Active Substance: PERINDOPRIL
  3. LENVIMA [Suspect]
     Active Substance: LENVATINIB
     Route: 048
     Dates: start: 20181115, end: 201811
  4. RABEPRAZOLE [Concomitant]
     Active Substance: RABEPRAZOLE
  5. SYNTHROID [Concomitant]
     Active Substance: LEVOTHYROXINE SODIUM
  6. CALCIUM [Concomitant]
     Active Substance: CALCIUM
  7. VITAMIN D [Concomitant]
     Active Substance: CHOLECALCIFEROL
  8. ATENOLOL. [Concomitant]
     Active Substance: ATENOLOL
  9. ALLOPURINOL. [Concomitant]
     Active Substance: ALLOPURINOL
  10. CHOLESTYRAMINE. [Concomitant]
     Active Substance: CHOLESTYRAMINE
  11. LENVIMA [Suspect]
     Active Substance: LENVATINIB
     Route: 048
     Dates: start: 20180313, end: 20181112
  12. AMLODIPINE [Concomitant]
     Active Substance: AMLODIPINE BESYLATE
  13. CARDIZEM [Concomitant]
     Active Substance: DILTIAZEM HYDROCHLORIDE
  14. LENVIMA [Suspect]
     Active Substance: LENVATINIB
     Route: 048
     Dates: start: 2017, end: 201705
  15. APO-DUTASTERIDE [Concomitant]
     Active Substance: DUTASTERIDE
  16. TAMSULOSIN [Concomitant]
     Active Substance: TAMSULOSIN
  17. LENVIMA [Suspect]
     Active Substance: LENVATINIB
     Route: 048
     Dates: start: 201705, end: 201706
  18. CANDESARTAN. [Concomitant]
     Active Substance: CANDESARTAN

REACTIONS (12)
  - Muscle strain [Unknown]
  - Urinary retention [Unknown]
  - Blood creatinine increased [Recovering/Resolving]
  - Oral pain [Not Recovered/Not Resolved]
  - Diarrhoea [Not Recovered/Not Resolved]
  - Hypotension [Recovered/Resolved]
  - Blood pressure increased [Recovered/Resolved]
  - Tremor [Recovered/Resolved]
  - Paraesthesia oral [Not Recovered/Not Resolved]
  - Muscle spasms [Unknown]
  - Dysphonia [Not Recovered/Not Resolved]
  - Infection [Unknown]

NARRATIVE: CASE EVENT DATE: 2017
